FAERS Safety Report 17900482 (Version 1)
Quarter: 2020Q2

REPORT INFORMATION
  Report Type: Spontaneous
  Country: US (occurrence: US)
  Receive Date: 20200615
  Receipt Date: 20200615
  Transmission Date: 20200714
  Serious: Yes (Other)
  Sender: FDA-Public Use
  Company Number: None

PATIENT
  Age: 39 Year
  Sex: Male
  Weight: 134 kg

DRUGS (3)
  1. AZITHROMYCIN 500 MG [Concomitant]
     Active Substance: AZITHROMYCIN ANHYDROUS
     Dates: start: 20200610, end: 20200612
  2. CEFTRIAXONE 2 GM [Concomitant]
     Dates: start: 20200610, end: 20200613
  3. REMDESIVIR. [Suspect]
     Active Substance: REMDESIVIR
     Indication: COVID-19
     Route: 042
     Dates: start: 20200611, end: 20200613

REACTIONS (5)
  - Lip swelling [None]
  - Swollen tongue [None]
  - Tongue oedema [None]
  - Angioedema [None]
  - Lip oedema [None]

NARRATIVE: CASE EVENT DATE: 20200613
